FAERS Safety Report 18284073 (Version 1)
Quarter: 2020Q3

REPORT INFORMATION
  Report Type: Spontaneous
  Country: CN (occurrence: CN)
  Receive Date: 20200918
  Receipt Date: 20200918
  Transmission Date: 20201103
  Serious: Yes (Hospitalization)
  Sender: FDA-Public Use
  Company Number: CN-ASTRAZENECA-2020SF20164

PATIENT
  Age: 28136 Day
  Sex: Male
  Weight: 44 kg

DRUGS (2)
  1. BUDESONIDE. [Suspect]
     Active Substance: BUDESONIDE
     Indication: PRODUCTIVE COUGH
     Dosage: 1MG, PER 0.1 DAY
     Route: 055
     Dates: start: 20200708, end: 20200711
  2. BROMHEXINE HYDROCHLORIDE [Suspect]
     Active Substance: BROMHEXINE HYDROCHLORIDE
     Indication: PRODUCTIVE COUGH
     Route: 041
     Dates: start: 20200708, end: 20200711

REACTIONS (2)
  - Thalamus haemorrhage [Unknown]
  - Drug eruption [Recovering/Resolving]

NARRATIVE: CASE EVENT DATE: 20200710
